FAERS Safety Report 6968138-2 (Version None)
Quarter: 2010Q3

REPORT INFORMATION
  Report Type: 
  Country: None (occurrence: None)
  Receive Date: 20100907
  Receipt Date: 20100827
  Transmission Date: 20110219
  Serious: Yes (Hospitalization)
  Sender: FDA-Public Use
  Company Number: B0672059A

PATIENT
  Age: 70 Year
  Sex: Female
  Weight: 99 kg

DRUGS (2)
  1. ARIXTRA [Suspect]
     Indication: PULMONARY EMBOLISM
     Dosage: 7.5MG PER DAY
     Route: 058
     Dates: end: 20100801
  2. LOVENOX [Suspect]
     Dosage: .4ML SINGLE DOSE
     Route: 058
     Dates: start: 20100801, end: 20100801

REACTIONS (3)
  - ABDOMINAL WALL HAEMATOMA [None]
  - HAEMOGLOBIN DECREASED [None]
  - SHOCK HAEMORRHAGIC [None]
